FAERS Safety Report 5020075-9 (Version None)
Quarter: 2006Q2

REPORT INFORMATION
  Report Type: 
  Country: None (occurrence: None)
  Receive Date: 20060607
  Receipt Date: 20060526
  Transmission Date: 20061013
  Serious: Yes (Hospitalization)
  Sender: FDA-Public Use
  Company Number: 448166

PATIENT
  Age: 68 Year
  Sex: Female

DRUGS (9)
  1. KREDEX [Suspect]
     Route: 048
     Dates: start: 20060213, end: 20060220
  2. TAHOR [Suspect]
     Route: 048
     Dates: start: 20060213, end: 20060220
  3. LOVENOX [Suspect]
     Route: 058
     Dates: start: 20060213, end: 20060217
  4. COVERSYL [Suspect]
     Route: 048
     Dates: start: 20060213, end: 20060220
  5. VISIPAQUE [Concomitant]
     Route: 065
     Dates: start: 20060216, end: 20060216
  6. PLAVIX [Concomitant]
     Route: 065
     Dates: start: 20060213
  7. ASPIRIN [Concomitant]
     Route: 065
     Dates: start: 20060213
  8. INTEGRILIN [Concomitant]
     Route: 065
     Dates: start: 20060215, end: 20060216
  9. VIRLIX [Concomitant]
     Route: 065
     Dates: start: 20060216, end: 20060218

REACTIONS (5)
  - C-REACTIVE PROTEIN INCREASED [None]
  - EOSINOPHILIA [None]
  - GAMMA-GLUTAMYLTRANSFERASE INCREASED [None]
  - PRURITUS [None]
  - RASH MACULO-PAPULAR [None]
